FAERS Safety Report 17420620 (Version 1)
Quarter: 2020Q1

REPORT INFORMATION
  Report Type: Spontaneous
  Country: US (occurrence: US)
  Receive Date: 20200130
  Receipt Date: 20200130
  Transmission Date: 20200409
  Serious: Yes (Life-Threatening, Hospitalization)
  Sender: FDA-Public Use
  Company Number: None

PATIENT
  Age: 68 Year
  Sex: Male

DRUGS (1)
  1. WARFARIN (WARFARIN NA (EXELAN) 5MG TAB) [Suspect]
     Active Substance: WARFARIN SODIUM
     Indication: ATRIAL FIBRILLATION
     Dates: start: 20190605, end: 20191219

REACTIONS (8)
  - Haemoglobin decreased [None]
  - Anticoagulation drug level above therapeutic [None]
  - Acute kidney injury [None]
  - Gastric haemorrhage [None]
  - Rectal haemorrhage [None]
  - Therapy cessation [None]
  - Haemorrhoidal haemorrhage [None]
  - Refusal of treatment by patient [None]

NARRATIVE: CASE EVENT DATE: 20190605
